FAERS Safety Report 7799139-2 (Version None)
Quarter: 2011Q4

REPORT INFORMATION
  Report Type: 
  Country: None (occurrence: None)
  Receive Date: 20111006
  Receipt Date: 20111003
  Transmission Date: 20120403
  Serious: Yes (Hospitalization, Other)
  Sender: FDA-Public Use
  Company Number: FR-PFIZER INC-2011223859

PATIENT
  Age: 21 Year
  Sex: Female

DRUGS (3)
  1. ACETAMINOPHEN AND TRAMADOL HCL [Suspect]
     Dosage: AT 5:00 P.M. AND 06:00 P.M., INTAKE OF 2 TABLETS
     Route: 048
     Dates: start: 20101203, end: 20101203
  2. CELEBREX [Suspect]
     Dosage: AT 5:00 P.M. AND 06:00 P.M., INTAKE OF 2 TABLETS
     Route: 048
     Dates: start: 20101203, end: 20101203
  3. TETRAZETS [Suspect]
     Dosage: UNKNOWN DOSAGE IN SINGLE INTAKE
     Route: 048
     Dates: start: 20101203, end: 20101203

REACTIONS (8)
  - MEMORY IMPAIRMENT [None]
  - ALANINE AMINOTRANSFERASE INCREASED [None]
  - PROTHROMBIN TIME RATIO DECREASED [None]
  - MULTIPLE DRUG OVERDOSE INTENTIONAL [None]
  - SUICIDE ATTEMPT [None]
  - TRANSAMINASES INCREASED [None]
  - DRUG LEVEL INCREASED [None]
  - ASPARTATE AMINOTRANSFERASE INCREASED [None]
